FAERS Safety Report 6180569-X (Version None)
Quarter: 2009Q2

REPORT INFORMATION
  Report Type: 
  Country: None (occurrence: None)
  Receive Date: 20090504
  Receipt Date: 20090504
  Transmission Date: 20091009
  Serious: Yes (Disabling)
  Sender: FDA-Public Use
  Company Number: None

PATIENT
  Age: 35 Year
  Sex: Female
  Weight: 97.5234 kg

DRUGS (5)
  1. TOPAMAX [Suspect]
     Indication: HEADACHE
     Dosage: 4 DAILY ORAL
     Route: 048
     Dates: start: 20090326, end: 20090327
  2. COPAXONE [Concomitant]
  3. BACLOFEN [Concomitant]
  4. NEURONTIN [Concomitant]
  5. PAXIL [Concomitant]

REACTIONS (4)
  - FATIGUE [None]
  - FEELING ABNORMAL [None]
  - PARAESTHESIA [None]
  - SOMNOLENCE [None]
